FAERS Safety Report 8908473 (Version 1)
Quarter: 2012Q4

REPORT INFORMATION
  Report Type: 
  Country: US (occurrence: US)
  Receive Date: 20121114
  Receipt Date: 20121114
  Transmission Date: 20130627
  Serious: No
  Sender: FDA-Public Use
  Company Number: US-PFIZER INC-2012284117

PATIENT
  Age: 64 Year
  Sex: Female
  Weight: 67.57 kg

DRUGS (3)
  1. PROPANOLOL HCL [Suspect]
     Indication: PALPITATIONS
     Dosage: UNK
  2. NEURONTIN [Suspect]
     Indication: FIBROMYALGIA
     Dosage: UNK
  3. TRAMADOL HYDROCHLORIDE [Suspect]
     Indication: FIBROMYALGIA
     Dosage: UNK

REACTIONS (2)
  - Drug ineffective [Unknown]
  - Drug effect incomplete [Unknown]
